FAERS Safety Report 8818354 (Version 2)
Quarter: 2012Q4

REPORT INFORMATION
  Report Type: 
  Country: US (occurrence: US)
  Receive Date: 20121001
  Receipt Date: 20121017
  Transmission Date: 20130627
  Serious: Yes (Hospitalization, Disabling, Other)
  Sender: FDA-Public Use
  Company Number: US-009507513-1106USA01820

PATIENT

DRUGS (7)
  1. FOSAMAX [Suspect]
     Indication: OSTEOPOROSIS
     Dosage: 70 mg, QW
     Route: 048
     Dates: start: 20010313, end: 20050811
  2. FOSAMAX [Suspect]
     Indication: OSTEOPENIA
  3. FOSAMAX [Suspect]
     Indication: OSTEOPOROSIS
     Dosage: 70 mg, QW
     Route: 048
     Dates: start: 20090820, end: 20091219
  4. FOSAMAX [Suspect]
     Indication: OSTEOPENIA
  5. FOSAMAX D [Suspect]
     Indication: OSTEOPOROSIS
     Dosage: 70 mg, QW
     Route: 048
     Dates: start: 20051119, end: 20081222
  6. FOSAMAX D [Suspect]
     Indication: OSTEOPENIA
  7. FOSAMAX [Suspect]

REACTIONS (77)
  - Femur fracture [Not Recovered/Not Resolved]
  - Fracture nonunion [Not Recovered/Not Resolved]
  - Breast cancer [Unknown]
  - Open reduction of fracture [Unknown]
  - Seroma [Recovered/Resolved]
  - Medical device removal [Unknown]
  - Visual impairment [Recovered/Resolved]
  - Fall [Unknown]
  - Migraine [Recovered/Resolved]
  - Postoperative wound infection [Recovered/Resolved]
  - Device failure [Unknown]
  - Gallbladder operation [Unknown]
  - Nephropathy [Unknown]
  - Simple mastectomy [Unknown]
  - Infection [Unknown]
  - Thrombocytopenia [Unknown]
  - Incisional drainage [Unknown]
  - Haemorrhagic anaemia [Recovered/Resolved]
  - Tachycardia [Unknown]
  - Device related infection [Unknown]
  - Low turnover osteopathy [Not Recovered/Not Resolved]
  - Dizziness [Recovered/Resolved]
  - Migraine [Unknown]
  - Foot fracture [Unknown]
  - Foot fracture [Unknown]
  - Nerve compression [Unknown]
  - Stress [Unknown]
  - Depression [Unknown]
  - Anxiety [Unknown]
  - Fracture nonunion [Unknown]
  - Mitral valve prolapse [Unknown]
  - Osteoarthritis [Unknown]
  - Hypoaesthesia [Unknown]
  - Rheumatoid arthritis [Unknown]
  - Panic attack [Unknown]
  - Obesity [Unknown]
  - Adverse drug reaction [Unknown]
  - Feeling jittery [Unknown]
  - Mood swings [Unknown]
  - Spinal osteoarthritis [Unknown]
  - Presyncope [Unknown]
  - Adverse drug reaction [Unknown]
  - Intervertebral disc degeneration [Unknown]
  - Poor quality sleep [Unknown]
  - Scoliosis [Unknown]
  - Gallbladder disorder [Unknown]
  - Restless legs syndrome [Unknown]
  - Myofascial pain syndrome [Unknown]
  - Vessel perforation [Unknown]
  - Foot deformity [Unknown]
  - Haematoma [Unknown]
  - Tooth disorder [Unknown]
  - Tooth disorder [Unknown]
  - Gingivitis [Unknown]
  - Tooth disorder [Unknown]
  - Oral pain [Unknown]
  - Tooth deposit [Unknown]
  - Tooth fracture [Unknown]
  - Arthropathy [Unknown]
  - Dental caries [Unknown]
  - Dental care [Unknown]
  - Tooth fracture [Unknown]
  - Tooth fracture [Unknown]
  - Exostosis [Unknown]
  - Blood creatinine increased [Unknown]
  - Tooth disorder [Unknown]
  - Heart rate increased [Unknown]
  - Dry mouth [Unknown]
  - Gait disturbance [Unknown]
  - Arthralgia [Unknown]
  - Pain in extremity [Unknown]
  - Arthralgia [Unknown]
  - Muscle spasms [Unknown]
  - Back pain [Unknown]
  - Pain in jaw [Unknown]
  - Gastrooesophageal reflux disease [Unknown]
  - Osteoarthritis [Unknown]
